FAERS Safety Report 22989525 (Version 3)
Quarter: 2023Q4

REPORT INFORMATION
  Report Type: Spontaneous
  Country: US (occurrence: US)
  Receive Date: 20230927
  Receipt Date: 20231228
  Transmission Date: 20240109
  Serious: Yes (Other)
  Sender: FDA-Public Use
  Company Number: US-BRISTOL-MYERS SQUIBB COMPANY-2023-136760

PATIENT
  Age: 74 Year
  Sex: Female

DRUGS (1)
  1. LENALIDOMIDE [Suspect]
     Active Substance: LENALIDOMIDE
     Indication: Plasma cell myeloma
     Dosage: TAKE 1 CAPSULE BY MOUTH WITH WATER, W/ OR W/O FOOD, AT SAME TIME DAILY FOR 14 DAYS ON THEN 7 DAYS OF
     Route: 048
     Dates: start: 20221024

REACTIONS (4)
  - Rash [Not Recovered/Not Resolved]
  - Off label use [Unknown]
  - Product dose omission issue [Recovering/Resolving]
  - Shoulder fracture [Unknown]

NARRATIVE: CASE EVENT DATE: 20231219
